FAERS Safety Report 9315260 (Version 1)
Quarter: 2013Q2

REPORT INFORMATION
  Report Type: Spontaneous
  Country: SG (occurrence: SG)
  Receive Date: 20130529
  Receipt Date: 20130529
  Transmission Date: 20140414
  Serious: Yes (Other)
  Sender: FDA-Public Use
  Company Number: SG-UCBSA-086884

PATIENT
  Age: 56 Year
  Sex: Female

DRUGS (3)
  1. KEPPRA [Suspect]
     Dosage: UNSPECIFIED DOSE
  2. PHENYTOIN [Suspect]
     Dosage: UNSPECIFIED DOSE
  3. VALPROIC ACID [Suspect]
     Dosage: UNSPECIFIED DOSE

REACTIONS (4)
  - Rash maculo-papular [Unknown]
  - Lip oedema [Unknown]
  - Pyrexia [Unknown]
  - Transaminases increased [Unknown]
